FAERS Safety Report 13433857 (Version 3)
Quarter: 2017Q3

REPORT INFORMATION
  Report Type: Spontaneous
  Country: US (occurrence: US)
  Receive Date: 20170412
  Receipt Date: 20170724
  Transmission Date: 20171127
  Serious: Yes (Life-Threatening, Hospitalization)
  Sender: FDA-Public Use
  Company Number: US-CELGENEUS-USA-20170403479

PATIENT
  Age: 68 Year
  Sex: Male

DRUGS (8)
  1. REVLIMID [Suspect]
     Active Substance: LENALIDOMIDE
     Indication: PLASMA CELL MYELOMA
     Dosage: 10 MILLIGRAM
     Route: 048
     Dates: start: 20161208, end: 20170328
  2. VALTREX [Concomitant]
     Active Substance: VALACYCLOVIR HYDROCHLORIDE
     Indication: PROPHYLAXIS
     Dosage: 500 MILLIGRAM
     Route: 048
     Dates: start: 20161209, end: 20170328
  3. LOSARTAN. [Concomitant]
     Active Substance: LOSARTAN
     Indication: HYPERTENSION
  4. ASPIRIN. [Concomitant]
     Active Substance: ASPIRIN
     Indication: PROPHYLAXIS
  5. DECADRON [Concomitant]
     Active Substance: DEXAMETHASONE
     Indication: PLASMACYTOMA
     Dosage: 40 MILLIGRAM
     Route: 048
     Dates: start: 20161208, end: 20170328
  6. ASPIRIN. [Concomitant]
     Active Substance: ASPIRIN
     Indication: PLASMACYTOMA
     Dosage: 81 MILLIGRAM
     Route: 065
     Dates: start: 20161208, end: 20170328
  7. LOSARTAN. [Concomitant]
     Active Substance: LOSARTAN
     Indication: FLUID IMBALANCE
     Dosage: 25 MILLIGRAM
     Route: 065
     Dates: start: 20160303, end: 20170404
  8. REVLIMID [Suspect]
     Active Substance: LENALIDOMIDE
     Indication: PLASMACYTOMA
     Dosage: 10 MILLIGRAM
     Route: 048
     Dates: start: 20161111

REACTIONS (2)
  - Pulmonary embolism [Recovering/Resolving]
  - Deep vein thrombosis [Recovering/Resolving]

NARRATIVE: CASE EVENT DATE: 20170328
